FAERS Safety Report 9437982 (Version 1)
Quarter: 2013Q3

REPORT INFORMATION
  Report Type: Spontaneous
  Country: US (occurrence: US)
  Receive Date: 20130802
  Receipt Date: 20130802
  Transmission Date: 20140515
  Serious: Yes (Death, Life-Threatening, Hospitalization)
  Sender: FDA-Public Use
  Company Number: US-BRISTOL-MYERS SQUIBB COMPANY-18804211

PATIENT
  Age: 68 Year
  Sex: Female
  Weight: 85.2 kg

DRUGS (7)
  1. COUMADIN [Suspect]
     Indication: PULMONARY HYPERTENSION
     Route: 048
     Dates: start: 20030513, end: 20130109
  2. ASPIRIN [Suspect]
     Route: 048
     Dates: start: 200201, end: 20130110
  3. BOSENTAN [Concomitant]
     Indication: PULMONARY HYPERTENSION
     Route: 048
     Dates: start: 20021219, end: 20130116
  4. FUROSEMIDE [Concomitant]
     Route: 048
     Dates: start: 20030128, end: 20130110
  5. LISINOPRIL [Concomitant]
     Route: 048
     Dates: start: 20110919, end: 20130110
  6. VERAPAMIL [Concomitant]
     Route: 048
     Dates: start: 20021001, end: 20130110
  7. METFORMIN [Concomitant]
     Route: 048
     Dates: start: 20070223, end: 20130110

REACTIONS (2)
  - Subdural haematoma [Fatal]
  - Fall [Unknown]
